FAERS Safety Report 9989492 (Version 2)
Quarter: 2014Q1

REPORT INFORMATION
  Report Type: Report from Study
  Country: US (occurrence: US)
  Receive Date: 20140310
  Receipt Date: 20140310
  Transmission Date: 20141002
  Serious: No
  Sender: FDA-Public Use
  Company Number: US-ABBVIE-13P-163-1100784-00

PATIENT
  Age: 65 Year
  Sex: Female

DRUGS (12)
  1. HUMIRA [Suspect]
     Indication: COLITIS ULCERATIVE
     Dates: start: 20130307, end: 20130307
  2. HUMIRA [Suspect]
     Indication: CROHN^S DISEASE
     Dates: start: 20130321, end: 20130321
  3. HUMIRA [Suspect]
     Dates: start: 20130404
  4. PREDNISONE [Suspect]
     Indication: PRODUCT USED FOR UNKNOWN INDICATION
     Dates: end: 20130511
  5. ASACOL [Concomitant]
     Indication: PRODUCT USED FOR UNKNOWN INDICATION
     Dosage: 800MG (4) TABLETS DAILY
  6. ASACOL [Concomitant]
  7. DAYPRO [Concomitant]
     Indication: ARTHRITIS
     Dosage: 600MG (1-2) TABLETS DAILY
  8. GLIMEPIRIDE [Concomitant]
     Indication: DIABETES MELLITUS
     Dosage: 4 MG DAILY
  9. GLIMEPIRIDE [Concomitant]
  10. BENAZEPRIL [Concomitant]
     Indication: HYPERTENSION
     Dosage: 10 MG DAILY
  11. OXAPROZIN [Concomitant]
     Indication: ARTHRITIS
  12. METFORMIN [Concomitant]
     Indication: DIABETES MELLITUS
     Dosage: 500 MG AT NIGHT

REACTIONS (10)
  - Gait disturbance [Recovered/Resolved]
  - Pain in extremity [Recovered/Resolved]
  - Local swelling [Recovered/Resolved]
  - Pain in extremity [Recovered/Resolved]
  - Arthralgia [Recovered/Resolved]
  - Arthritis [Recovered/Resolved]
  - Oedema [Recovered/Resolved]
  - Skin discolouration [Recovered/Resolved]
  - Bone pain [Recovered/Resolved]
  - Exostosis [Recovered/Resolved]
